FAERS Safety Report 9855745 (Version 2)
Quarter: 2014Q2

REPORT INFORMATION
  Report Type: Report from Study
  Country: BR (occurrence: BR)
  Receive Date: 20140130
  Receipt Date: 20140422
  Transmission Date: 20141212
  Serious: Yes (Hospitalization, Other)
  Sender: FDA-Public Use
  Company Number: PHHY2014BR008425

PATIENT
  Age: 45 Year
  Sex: Male
  Weight: 119 kg

DRUGS (7)
  1. SANDOSTATIN LAR [Suspect]
     Indication: PANCREATIC CARCINOMA
     Dosage: UNK UKN, 1 APPLICATION EVERY MONTH
     Dates: start: 201302
  2. NEUTROFER [Concomitant]
     Dosage: UNK UKN, TID
  3. ATACAND [Concomitant]
     Indication: HYPERTENSION
     Dosage: 1 DF, DAILY
     Route: 048
  4. CYMBALTA [Concomitant]
     Indication: ABDOMINAL PAIN
     Dosage: 3 DF, DAILY
     Route: 048
     Dates: start: 201306
  5. ULTRACET [Concomitant]
     Indication: ABDOMINAL PAIN
     Dosage: 3 DF, DAILY
     Route: 048
     Dates: start: 201306
  6. OMEPRAZOLE [Concomitant]
     Indication: ABDOMINAL INJURY
     Dosage: 1 DF, DAILY
     Route: 048
  7. OMEPRAZOLE [Concomitant]
     Indication: GASTROINTESTINAL DISORDER

REACTIONS (6)
  - Haemorrhage [Recovered/Resolved]
  - Insomnia [Recovering/Resolving]
  - Anaemia [Recovered/Resolved]
  - Diabetes mellitus [Recovering/Resolving]
  - Hot flush [Recovering/Resolving]
  - Dysuria [Recovering/Resolving]
